FAERS Safety Report 21069026 (Version 2)
Quarter: 2022Q3

REPORT INFORMATION
  Report Type: Spontaneous
  Country: SG (occurrence: SG)
  Receive Date: 20220712
  Receipt Date: 20220714
  Transmission Date: 20221027
  Serious: Yes (Life-Threatening, Hospitalization, Other)
  Sender: FDA-Public Use
  Company Number: SG-PFIZER INC-PV202200012696

PATIENT
  Age: 51 Year
  Sex: Female

DRUGS (1)
  1. METHYLPREDNISOLONE [Suspect]
     Active Substance: METHYLPREDNISOLONE
     Indication: Systemic lupus erythematosus
     Dosage: 16 MG, 3X/DAY

REACTIONS (2)
  - Tracheal injury [Recovered/Resolved]
  - Hyperglycaemia [Unknown]
